FAERS Safety Report 18187957 (Version 2)
Quarter: 2020Q3

REPORT INFORMATION
  Report Type: Spontaneous
  Country: CH (occurrence: CH)
  Receive Date: 20200824
  Receipt Date: 20200902
  Transmission Date: 20201103
  Serious: Yes (Other)
  Sender: FDA-Public Use
  Company Number: NVSC2020CH225597

PATIENT
  Age: 77 Year
  Sex: Male

DRUGS (3)
  1. BEOVU [Suspect]
     Active Substance: BROLUCIZUMAB-DBLL
     Dosage: 0.05 ML
     Route: 031
     Dates: start: 20200519, end: 20200519
  2. BEOVU [Suspect]
     Active Substance: BROLUCIZUMAB-DBLL
     Dosage: 0.05 ML
     Route: 031
     Dates: start: 20200416, end: 20200416
  3. BEOVU [Suspect]
     Active Substance: BROLUCIZUMAB-DBLL
     Indication: NEOVASCULAR AGE-RELATED MACULAR DEGENERATION
     Dosage: 0.05 ML
     Route: 031
     Dates: start: 20200303, end: 20200303

REACTIONS (3)
  - Aphasia [Recovering/Resolving]
  - Transient ischaemic attack [Recovering/Resolving]
  - Monoparesis [Recovering/Resolving]

NARRATIVE: CASE EVENT DATE: 20200610
